FAERS Safety Report 24215018 (Version 5)
Quarter: 2024Q3

REPORT INFORMATION
  Report Type: Report from Study
  Country: DE (occurrence: DE)
  Receive Date: 20240815
  Receipt Date: 20240926
  Transmission Date: 20241016
  Serious: Yes (Death, Life-Threatening, Hospitalization, Disabling)
  Sender: ABBVIE
  Company Number: DE-JNJFOC-20240648669

PATIENT
  Age: 72 Year
  Sex: Male
  Weight: 71 kg

DRUGS (2)
  1. IBRUTINIB [Suspect]
     Active Substance: IBRUTINIB
     Indication: Chronic lymphocytic leukaemia
     Route: 048
     Dates: start: 20240508, end: 20240725
  2. VENETOCLAX [Suspect]
     Active Substance: VENETOCLAX
     Indication: Chronic lymphocytic leukaemia
     Route: 048

REACTIONS (3)
  - Central nervous system fungal infection [Fatal]
  - Diarrhoea [Unknown]
  - Pyrexia [Fatal]

NARRATIVE: CASE EVENT DATE: 20240613
